FAERS Safety Report 16153677 (Version 1)
Quarter: 2019Q2

REPORT INFORMATION
  Report Type: Spontaneous
  Country: TW (occurrence: TW)
  Receive Date: 20190403
  Receipt Date: 20190403
  Transmission Date: 20190711
  Serious: Yes (Other)
  Sender: FDA-Public Use
  Company Number: TW-BAYER-2019-063423

PATIENT
  Age: 65 Year
  Sex: Male

DRUGS (2)
  1. PEMBROLIZUMAB. [Concomitant]
     Active Substance: PEMBROLIZUMAB
     Indication: HEPATOCELLULAR CARCINOMA
     Dosage: 100 MG Q3W, COMBINED WITH SORAFENIB (DOSE UNKNOWN)
     Dates: start: 20161118
  2. NEXAVAR [Suspect]
     Active Substance: SORAFENIB
     Indication: HEPATOCELLULAR CARCINOMA
     Dosage: UNK

REACTIONS (1)
  - Hepatocellular carcinoma [None]
